FAERS Safety Report 25312636 (Version 2)
Quarter: 2025Q3

REPORT INFORMATION
  Report Type: Spontaneous
  Country: GB (occurrence: GB)
  Receive Date: 20250514
  Receipt Date: 20250702
  Transmission Date: 20251021
  Serious: Yes (Disabling, Other)
  Sender: TORRENT PHARMA INC.
  Company Number: None

PATIENT
  Age: 36 Year
  Sex: Female
  Weight: 93 kg

DRUGS (1)
  1. VENLAFAXINE [Suspect]
     Active Substance: VENLAFAXINE HYDROCHLORIDE
     Indication: Adverse drug reaction
     Route: 065

REACTIONS (5)
  - Anger [Recovering/Resolving]
  - Self-injurious ideation [Recovering/Resolving]
  - Mood swings [Recovering/Resolving]
  - Drug intolerance [Recovering/Resolving]
  - Dissociation [Recovering/Resolving]
